FAERS Safety Report 8772780 (Version 1)
Quarter: 2012Q4

REPORT INFORMATION
  Report Type: 
  Country: FR (occurrence: FR)
  Receive Date: 20120907
  Receipt Date: 20120907
  Transmission Date: 20130627
  Serious: Yes (Hospitalization)
  Sender: FDA-Public Use
  Company Number: FR-009507513-1208FRA011776

PATIENT

DRUGS (8)
  1. SINEMET L.P. [Suspect]
     Dosage: 200 mg, tid
     Route: 048
  2. VEMURAFENIB [Suspect]
     Indication: METASTATIC MALIGNANT MELANOMA
     Dosage: 720 mg, bid
     Route: 048
     Dates: start: 20120202, end: 20120302
  3. MODOPAR [Suspect]
     Dosage: 6 DF, qd
     Route: 048
  4. MANTADIX [Suspect]
     Dosage: 100 mg, bid
     Route: 048
  5. REQUIP [Suspect]
     Dosage: 8 mg, qd
     Route: 048
  6. POLYETHYLENE GLYCOL [Concomitant]
     Route: 048
  7. COMTAN [Concomitant]
     Route: 048
  8. FLUTAMIDE [Concomitant]
     Route: 048

REACTIONS (5)
  - Confusional state [Unknown]
  - Extrapyramidal disorder [Unknown]
  - Renal failure acute [None]
  - Aphasia [None]
  - Anaemia [None]
